FAERS Safety Report 4449377-1 (Version None)
Quarter: 2004Q3

REPORT INFORMATION
  Report Type: 
  Country: None (occurrence: None)
  Receive Date: 20040913
  Receipt Date: 20040830
  Transmission Date: 20050211
  Serious: Yes (Death, Life-Threatening, Hospitalization)
  Sender: FDA-Public Use
  Company Number: 2004_000062

PATIENT
  Age: 56 Year
  Sex: Female

DRUGS (2)
  1. DEPOCYT [Suspect]
     Indication: METASTASES TO MENINGES
     Dosage: 50 MG; X1; INTRATHECAL
     Route: 037
     Dates: start: 20040623, end: 20040623
  2. GEMCITABINE [Concomitant]

REACTIONS (18)
  - AMNESIA [None]
  - BLOOD CHLORIDE DECREASED [None]
  - CENTRAL NERVOUS SYSTEM NEOPLASM [None]
  - CEREBRAL VENTRICLE DILATATION [None]
  - CONFUSIONAL STATE [None]
  - CONVULSION [None]
  - DEHYDRATION [None]
  - DEPRESSED LEVEL OF CONSCIOUSNESS [None]
  - DISEASE PROGRESSION [None]
  - DRUG INEFFECTIVE [None]
  - DRUG TOXICITY [None]
  - HEADACHE [None]
  - HYDROCEPHALUS [None]
  - INAPPROPRIATE ANTIDIURETIC HORMONE SECRETION [None]
  - NAUSEA [None]
  - NERVOUS SYSTEM DISORDER [None]
  - RESPIRATORY ARREST [None]
  - VOMITING [None]
